FAERS Safety Report 10566533 (Version 1)
Quarter: 2014Q4

REPORT INFORMATION
  Report Type: Report from Study
  Country: US (occurrence: US)
  Receive Date: 20141105
  Receipt Date: 20141105
  Transmission Date: 20150529
  Serious: Yes (Other)
  Sender: FDA-Public Use
  Company Number: US-PFIZER INC-2014300830

PATIENT

DRUGS (1)
  1. DOXYCYCLINE HYCLATE. [Suspect]
     Active Substance: DOXYCYCLINE HYCLATE
     Indication: DEVICE RELATED INFECTION
     Dosage: UNK

REACTIONS (3)
  - Clostridium difficile infection [Unknown]
  - Corynebacterium infection [Unknown]
  - Drug ineffective [Unknown]
